FAERS Safety Report 4838906-1 (Version None)
Quarter: 2005Q4

REPORT INFORMATION
  Report Type: 
  Country: None (occurrence: None)
  Receive Date: 20051123
  Receipt Date: 20051123
  Transmission Date: 20060501
  Serious: No
  Sender: FDA-Public Use
  Company Number: None

PATIENT
  Age: 13 Year
  Sex: Female

DRUGS (1)
  1. CLOZARIL [Suspect]

REACTIONS (3)
  - ACCIDENTAL EXPOSURE [None]
  - MEDICATION ERROR [None]
  - POOR QUALITY DRUG ADMINISTERED [None]
